FAERS Safety Report 19493587 (Version 3)
Quarter: 2025Q1

REPORT INFORMATION
  Report Type: Spontaneous
  Country: US (occurrence: US)
  Receive Date: 20210705
  Receipt Date: 20250208
  Transmission Date: 20250408
  Serious: Yes (Hospitalization)
  Sender: AVEO PHARMACEUTICALS
  Company Number: US-AVEO ONCOLOGY-2021-AVEO-US003386

PATIENT

DRUGS (12)
  1. FOTIVDA [Suspect]
     Active Substance: TIVOZANIB HYDROCHLORIDE
     Indication: Renal cancer
     Dosage: 1.34 MG, DAILY FOR 21 DAYS, THEN OFF 7 DAYS
     Route: 048
     Dates: start: 20210611
  2. ASPIRIN [Concomitant]
     Active Substance: ASPIRIN
  3. ATORVASTATIN [Concomitant]
     Active Substance: ATORVASTATIN
  4. CALCIUM\CHOLECALCIFEROL [Concomitant]
     Active Substance: CALCIUM\CHOLECALCIFEROL
  5. ATROPINE SULFATE\DIPHENOXYLATE HYDROCHLORIDE [Concomitant]
     Active Substance: ATROPINE SULFATE\DIPHENOXYLATE HYDROCHLORIDE
  6. LEVOTHYROXINE [Concomitant]
     Active Substance: LEVOTHYROXINE
  7. LOPERAMIDE [Concomitant]
     Active Substance: LOPERAMIDE
  8. LORAZEPAM [Concomitant]
     Active Substance: LORAZEPAM
  9. MORPHINE SULFATE [Concomitant]
     Active Substance: MORPHINE SULFATE
  10. OMEPRAZOLE [Concomitant]
     Active Substance: OMEPRAZOLE
  11. ONDANSETRON [Concomitant]
     Active Substance: ONDANSETRON
  12. RAMIPRIL [Concomitant]
     Active Substance: RAMIPRIL

REACTIONS (3)
  - Cardiac failure congestive [Not Recovered/Not Resolved]
  - Fatigue [Unknown]
  - Dry mouth [Unknown]

NARRATIVE: CASE EVENT DATE: 20210617
